FAERS Safety Report 6096091-5 (Version None)
Quarter: 2009Q1

REPORT INFORMATION
  Report Type: 
  Country: None (occurrence: None)
  Receive Date: 20090227
  Receipt Date: 20081006
  Transmission Date: 20090719
  Serious: No
  Sender: FDA-Public Use
  Company Number: A0745395A

PATIENT
  Age: 58 Year
  Sex: Female
  Weight: 88.6 kg

DRUGS (3)
  1. LAMICTAL [Suspect]
     Indication: BIPOLAR DISORDER
     Dosage: 200MG UNKNOWN
     Route: 048
  2. ABILIFY [Concomitant]
     Dosage: 20MG UNKNOWN
  3. PAXIL CR [Concomitant]
     Indication: DRUG USE FOR UNKNOWN INDICATION
     Dosage: 75MG UNKNOWN
     Route: 048

REACTIONS (1)
  - MOUTH ULCERATION [None]
